FAERS Safety Report 12056527 (Version 2)
Quarter: 2017Q1

REPORT INFORMATION
  Report Type: Spontaneous
  Country: US (occurrence: US)
  Receive Date: 20160209
  Receipt Date: 20170131
  Transmission Date: 20170428
  Serious: No
  Sender: FDA-Public Use
  Company Number: US-ABBVIE-15P-163-1478825-00

PATIENT
  Sex: Female

DRUGS (1)
  1. HUMIRA [Suspect]
     Active Substance: ADALIMUMAB
     Indication: PRODUCT USED FOR UNKNOWN INDICATION
     Route: 058

REACTIONS (13)
  - Pain [Unknown]
  - Therapeutic response unexpected [Unknown]
  - Vulvovaginal pain [Unknown]
  - Pre-existing condition improved [Unknown]
  - Furuncle [Unknown]
  - Cyst [Unknown]
  - Gait disturbance [Unknown]
  - Anxiety [Unknown]
  - Dyspareunia [Unknown]
  - Hidradenitis [Unknown]
  - Depression [Unknown]
  - Emotional distress [Unknown]
  - Rash [Unknown]
